FAERS Safety Report 5690145-0 (Version None)
Quarter: 2008Q2

REPORT INFORMATION
  Report Type: 
  Country: None (occurrence: None)
  Receive Date: 20080401
  Receipt Date: 20080326
  Transmission Date: 20081010
  Serious: Yes (Hospitalization)
  Sender: FDA-Public Use
  Company Number: PHHO2007ES13164

PATIENT
  Age: 51 Year
  Sex: Male
  Weight: 77.6 kg

DRUGS (4)
  1. MYFORTIC [Suspect]
     Indication: RENAL TRANSPLANT
     Dosage: 720 MG/DAILY
     Route: 048
     Dates: start: 20070724, end: 20070809
  2. VALCYTE [Concomitant]
  3. PREDNISONE TAB [Concomitant]
  4. PROGRAF [Concomitant]
     Dates: end: 20080104

REACTIONS (18)
  - ANTIPHOSPHOLIPID SYNDROME [None]
  - BACTERAEMIA [None]
  - BONE MARROW DISORDER [None]
  - COMPLICATIONS OF TRANSPLANTED KIDNEY [None]
  - HAEMOLYTIC ANAEMIA [None]
  - LEUKOPENIA [None]
  - MYELODYSPLASTIC SYNDROME [None]
  - OBSTRUCTIVE AIRWAYS DISORDER [None]
  - PANCYTOPENIA [None]
  - PAROTITIS [None]
  - PERIANAL ABSCESS [None]
  - PYREXIA [None]
  - REMOVAL OF RENAL TRANSPLANT [None]
  - SPLEEN OPERATION [None]
  - SUPRAVENTRICULAR TACHYCARDIA [None]
  - THERAPEUTIC EMBOLISATION [None]
  - THROMBOTIC MICROANGIOPATHY [None]
  - TRACHEOSTOMY [None]
